FAERS Safety Report 16323580 (Version 1)
Quarter: 2019Q2

REPORT INFORMATION
  Report Type: Spontaneous
  Country: IR (occurrence: IR)
  Receive Date: 20190517
  Receipt Date: 20190517
  Transmission Date: 20190711
  Serious: Yes (Hospitalization, Other)
  Sender: FDA-Public Use
  Company Number: IR-LUPIN PHARMACEUTICALS INC.-2019-00520

PATIENT
  Age: 21 Year
  Sex: Female

DRUGS (6)
  1. BIPERIDEN [Suspect]
     Active Substance: BIPERIDEN
     Indication: MANIA
     Dosage: 4 MG, QD
     Route: 065
  2. QUETIAPINE FUMARATE. [Suspect]
     Active Substance: QUETIAPINE FUMARATE
     Dosage: UP TO 600 MG/DAY
     Route: 065
  3. LITHIUM CARBONATE. [Suspect]
     Active Substance: LITHIUM CARBONATE
     Indication: MANIA
     Dosage: 1200 MG, QD
  4. QUETIAPINE FUMARATE. [Suspect]
     Active Substance: QUETIAPINE FUMARATE
     Indication: MANIA
     Dosage: 600 MG, QD
     Route: 065
  5. BIPERIDEN [Suspect]
     Active Substance: BIPERIDEN
     Dosage: UPTO 4 MG/ DAY
     Route: 065
  6. LITHIUM CARBONATE. [Suspect]
     Active Substance: LITHIUM CARBONATE
     Dosage: UPTO 1200 MG/ DAY
     Route: 065

REACTIONS (1)
  - Catatonia [Recovered/Resolved]
